FAERS Safety Report 10009208 (Version 1)
Quarter: 2014Q1

REPORT INFORMATION
  Report Type: Spontaneous
  Country: US (occurrence: US)
  Receive Date: 20140313
  Receipt Date: 20140313
  Transmission Date: 20141002
  Serious: Yes (Hospitalization)
  Sender: FDA-Public Use
  Company Number: US-JNJFOC-20140303665

PATIENT
  Sex: Female

DRUGS (3)
  1. INVOKANA [Suspect]
     Indication: PRODUCT USED FOR UNKNOWN INDICATION
     Route: 048
  2. INSULIN [Concomitant]
  3. DPP4 INHIBITOR [Concomitant]

REACTIONS (4)
  - Diabetic foot infection [Unknown]
  - Blood glucose decreased [Unknown]
  - Renal impairment [Unknown]
  - Unevaluable event [Unknown]
